FAERS Safety Report 23252688 (Version 1)
Quarter: 2023Q4

REPORT INFORMATION
  Report Type: Spontaneous
  Country: US (occurrence: None)
  Receive Date: 20231201
  Receipt Date: 20231201
  Transmission Date: 20240110
  Serious: Yes (Hospitalization)
  Sender: FDA-Public Use
  Company Number: None

PATIENT

DRUGS (3)
  1. LENALIDOMIDE [Suspect]
     Active Substance: LENALIDOMIDE
  2. ASPIRIN TAB 325 MG EC [Concomitant]
  3. LOPERAMIDE CAP 2MG [Concomitant]

REACTIONS (2)
  - White blood cell count decreased [None]
  - Therapy interrupted [None]
